FAERS Safety Report 9855842 (Version 5)
Quarter: 2014Q2

REPORT INFORMATION
  Report Type: Report from Study
  Country: TW (occurrence: TW)
  Receive Date: 20140130
  Receipt Date: 20140528
  Transmission Date: 20141212
  Serious: Yes (Other)
  Sender: FDA-Public Use
  Company Number: PHHY2014TW010131

PATIENT
  Age: 79 Year
  Sex: Male
  Weight: 60 kg

DRUGS (46)
  1. AMN107 [Suspect]
     Dosage: 600 MG, DAY
     Route: 048
     Dates: start: 20110929, end: 20140420
  2. AMIDARONE [Concomitant]
     Indication: COUGH
     Dates: start: 20120119, end: 20120227
  3. BETAHISTIDINA [Concomitant]
     Indication: VERTEBROBASILAR INSUFFICIENCY
     Dates: start: 20111212, end: 20111219
  4. BISOPROLOL [Concomitant]
     Indication: CARDIAC FAILURE CONGESTIVE
     Dates: start: 20120811, end: 20121105
  5. BROMAZEPAM [Concomitant]
     Indication: DEPRESSION
     Dates: start: 20120802
  6. BROWN MIXTURE                      /01682301/ [Concomitant]
     Indication: COUGH
     Dates: start: 20121025, end: 20121102
  7. CALCIUM FOLINATE [Concomitant]
     Indication: DYSTHYMIC DISORDER
  8. CANDESARTAN [Concomitant]
     Indication: CARDIAC FAILURE CONGESTIVE
     Dates: start: 20120324, end: 20120909
  9. CELECOXIB [Concomitant]
     Indication: OSTEOARTHRITIS
     Dates: start: 20120315, end: 20120412
  10. CHLORHEXIDINE [Concomitant]
     Indication: COUGH
     Dates: start: 20120412, end: 20120415
  11. CHLORHEXIDINE [Concomitant]
     Dates: start: 20120510, end: 20120517
  12. CIMETIDINE [Concomitant]
     Indication: GASTROINTESTINAL DISORDER
     Dates: start: 20110820, end: 20110827
  13. CONCOR [Concomitant]
     Indication: COUGH
     Dosage: UNK
     Dates: start: 20120811
  14. CONSRINE [Concomitant]
     Indication: COUGH
     Dosage: UNK
     Dates: start: 20111124, end: 20111201
  15. CONSRINE [Concomitant]
     Dosage: UNK
     Dates: start: 20111222, end: 20111229
  16. CONSRINE [Concomitant]
     Dosage: UNK
     Dates: start: 20120216, end: 20120223
  17. CONSRINE [Concomitant]
     Dosage: UNK
     Dates: start: 20120315, end: 20120325
  18. CONSRINE [Concomitant]
     Dosage: UNK
     Dates: start: 20120410, end: 20120507
  19. CONSRINE [Concomitant]
     Dosage: UNK
     Dates: start: 20120510, end: 20120517
  20. CONSRINE [Concomitant]
     Dosage: UNK
     Dates: start: 20120607, end: 20120614
  21. CONSRINE [Concomitant]
     Dosage: UNK
     Dates: start: 20120705, end: 20120712
  22. CONSRINE [Concomitant]
     Dosage: UNK
     Dates: start: 20120802, end: 20120809
  23. CONSRINE [Concomitant]
     Dosage: UNK
     Dates: start: 20120830, end: 20120906
  24. CONSRINE [Concomitant]
     Dosage: UNK
     Dates: start: 20120927, end: 20121004
  25. CONSRINE [Concomitant]
     Dosage: UNK
     Dates: start: 20121025, end: 20121102
  26. DESLORATADINE [Concomitant]
     Indication: COUGH
     Dosage: UNK
     Dates: start: 20111124, end: 20111212
  27. DEXAMETHASONE [Concomitant]
     Dosage: UNK
     Dates: start: 20111013, end: 20111013
  28. DIGOXIN [Concomitant]
     Indication: CARDIAC FAILURE CHRONIC
     Dosage: UNK
     Dates: start: 20120119, end: 20120721
  29. DIGOXIN [Concomitant]
     Indication: MYOCARDIAL ISCHAEMIA
     Dosage: UNK
     Dates: start: 20120927
  30. DIMETHICONE [Concomitant]
     Indication: GASTROINTESTINAL DISORDER
     Dosage: UNK
     Dates: start: 20110820, end: 20110827
  31. DIPHENHYDRAMINE [Concomitant]
     Indication: PACKED RED BLOOD CELL TRANSFUSION
     Dosage: UNK
     Dates: start: 20111013, end: 20111013
  32. ESTAZOLAM [Concomitant]
     Indication: DYSTHYMIC DISORDER
     Dosage: UNK
  33. FLUVASTATIN [Concomitant]
     Indication: HYPERLIPIDAEMIA
     Dosage: UNK
     Dates: start: 20120216, end: 20120316
  34. FLUVASTATIN [Concomitant]
     Dosage: UNK
     Dates: start: 20120802, end: 20120830
  35. FOLIROMIN [Concomitant]
     Dosage: UNK
     Dates: start: 20121025
  36. FUROSEMIDE [Concomitant]
     Indication: CARDIAC FAILURE CONGESTIVE
     Dosage: UNK
     Dates: start: 20120121, end: 20120128
  37. FUROSEMIDE [Concomitant]
     Dosage: UNK
     Dates: start: 20120204, end: 20120325
  38. INDAPAMIDE [Concomitant]
     Indication: MYOCARDIAL ISCHAEMIA
     Dosage: UNK
     Dates: end: 20111125
  39. ISOSORBIDE DINITRATE [Concomitant]
     Indication: CARDIAC FAILURE CONGESTIVE
     Dosage: UNK
     Dates: start: 20120204
  40. MEPENZOLATE BROMIDE [Concomitant]
     Indication: GASTROINTESTINAL DISORDER
     Dosage: UNK
     Dates: start: 20110915, end: 20111027
  41. NICORANDIL [Concomitant]
     Indication: CARDIAC FAILURE CONGESTIVE
     Dosage: UNK
     Dates: start: 20110707, end: 20110901
  42. OTILONIUM BROMIDE [Concomitant]
     Indication: GASTROINTESTINAL DISORDER
     Dosage: UNK
     Dates: start: 20110820, end: 20110827
  43. RED BLOOD CELLS [Concomitant]
     Indication: ANAEMIA
     Dosage: UNK
     Dates: start: 20111013, end: 20111013
  44. RAMIPRIL [Concomitant]
     Indication: CARDIAC FAILURE CONGESTIVE
     Dosage: UNK
     Dates: start: 20120908
  45. SENNOSIDE [Concomitant]
     Indication: GASTROINTESTINAL DISORDER
     Dosage: UNK
     Dates: end: 20120802
  46. TETRACYCLINE [Concomitant]
     Indication: COUGH
     Dosage: UNK
     Dates: start: 20111222, end: 20111229

REACTIONS (7)
  - Electrocardiogram QT prolonged [Not Recovered/Not Resolved]
  - Vascular dementia [Not Recovered/Not Resolved]
  - Pulmonary oedema [Not Recovered/Not Resolved]
  - Glomerulonephritis chronic [Not Recovered/Not Resolved]
  - Hyperkalaemia [Not Recovered/Not Resolved]
  - Constipation [Not Recovered/Not Resolved]
  - Dyspnoea [Unknown]
